FAERS Safety Report 21296108 (Version 2)
Quarter: 2022Q3

REPORT INFORMATION
  Report Type: Spontaneous
  Country: FR (occurrence: FR)
  Receive Date: 20220906
  Receipt Date: 20220907
  Transmission Date: 20221026
  Serious: Yes (Hospitalization, Other)
  Sender: FDA-Public Use
  Company Number: FR-AFSSAPS-TO20222892

PATIENT
  Age: 67 Year
  Sex: Male
  Weight: 75.8 kg

DRUGS (2)
  1. REVLIMID [Suspect]
     Active Substance: LENALIDOMIDE
     Indication: Follicular lymphoma
     Dosage: START OF REVLIMID THERAPY AT 20 MG ON 25-MARCH-2022 THEN DECREASE OF THE DOSE AT 5 MG ON 31-MAY-2022
     Route: 048
     Dates: start: 20220325, end: 20220531
  2. REVLIMID [Suspect]
     Active Substance: LENALIDOMIDE
     Route: 065
     Dates: start: 20220531

REACTIONS (2)
  - Hypercalcaemia [Not Recovered/Not Resolved]
  - Acute kidney injury [Recovered/Resolved]

NARRATIVE: CASE EVENT DATE: 20220328
